FAERS Safety Report 5845603-2 (Version None)
Quarter: 2008Q3

REPORT INFORMATION
  Report Type: 
  Country: None (occurrence: None)
  Receive Date: 20080814
  Receipt Date: 20080806
  Transmission Date: 20090109
  Serious: Yes (Death, Other)
  Sender: FDA-Public Use
  Company Number: PHHO2008MX09631

PATIENT
  Sex: Male

DRUGS (1)
  1. TASIGNA [Suspect]
     Indication: CHRONIC MYELOID LEUKAEMIA
     Dosage: 400 MG, Q12H
     Route: 048
     Dates: start: 20070316, end: 20080119

REACTIONS (11)
  - ACUTE MYOCARDIAL INFARCTION [None]
  - BLAST CELLS PRESENT [None]
  - CHRONIC MYELOID LEUKAEMIA [None]
  - DRUG INEFFECTIVE [None]
  - DYSPNOEA [None]
  - HYPERHIDROSIS [None]
  - MYELOFIBROSIS [None]
  - PULMONARY EMBOLISM [None]
  - SHOCK [None]
  - SOPOR [None]
  - SPLENOMEGALY [None]
